FAERS Safety Report 12355855 (Version 1)
Quarter: 2016Q2

REPORT INFORMATION
  Report Type: Report from Study
  Country: IL (occurrence: IL)
  Receive Date: 20160511
  Receipt Date: 20160511
  Transmission Date: 20160815
  Serious: Yes (Hospitalization, Other)
  Sender: FDA-Public Use
  Company Number: IL-BAYER-2016-083938

PATIENT
  Age: 38 Year
  Sex: Female

DRUGS (7)
  1. VOLTAREN [DICLOFENAC] [Concomitant]
     Active Substance: DICLOFENAC SODIUM
     Dosage: 75 MG, TID, PRN
     Route: 030
  2. AUGMENTIN [Concomitant]
     Active Substance: AMOXICILLIN\CLAVULANATE POTASSIUM
     Dosage: 875 MG, BID
     Route: 048
  3. MIRENA [Suspect]
     Active Substance: LEVONORGESTREL
     Dosage: 20 MCG/24HR, CONT
     Route: 015
     Dates: start: 20160404, end: 20160429
  4. METRONIDAZOLE. [Concomitant]
     Active Substance: METRONIDAZOLE
     Dosage: 500 MG, TID
     Route: 042
  5. OPTALGIN [Concomitant]
     Active Substance: METAMIZOLE
     Dosage: 1000 MG, QID, PRN
     Route: 048
  6. PRAMIN [Concomitant]
     Dosage: 100 ML, TID, PRN
     Route: 042
  7. CEFTRIAXONE SODIUM. [Concomitant]
     Active Substance: CEFTRIAXONE SODIUM
     Dosage: 2 G, QD
     Route: 042

REACTIONS (8)
  - Post procedural haemorrhage [None]
  - Diarrhoea [Recovered/Resolved]
  - C-reactive protein abnormal [Recovering/Resolving]
  - Abdominal pain lower [Recovered/Resolved]
  - Pelvic inflammatory disease [Recovered/Resolved]
  - Vaginal discharge [Recovered/Resolved]
  - Leukocytosis [Recovered/Resolved]
  - Polycystic ovaries [None]

NARRATIVE: CASE EVENT DATE: 201604
